FAERS Safety Report 9175798 (Version 3)
Quarter: 2013Q2

REPORT INFORMATION
  Report Type: Spontaneous
  Country: FR (occurrence: FR)
  Receive Date: 20130320
  Receipt Date: 20130404
  Transmission Date: 20140414
  Serious: Yes (Other)
  Sender: FDA-Public Use
  Company Number: FR-ACTELION-A-CH2013-80007

PATIENT
  Age: 12 Year
  Sex: Female
  Weight: 28 kg

DRUGS (4)
  1. ZAVESCA [Suspect]
     Indication: NIEMANN-PICK DISEASE
     Dosage: 400 MG, BID
     Route: 048
     Dates: start: 201006
  2. ANAFRANIL [Concomitant]
     Dosage: UNK
     Dates: start: 201210
  3. KANEURON [Concomitant]
     Dosage: UNK
     Dates: start: 201202
  4. ARTANE [Concomitant]
     Dosage: UNK
     Dates: start: 201004

REACTIONS (5)
  - Rash [Not Recovered/Not Resolved]
  - Autonomic neuropathy [Not Recovered/Not Resolved]
  - Oedema peripheral [Not Recovered/Not Resolved]
  - Red blood cell sedimentation rate increased [Unknown]
  - Streptococcus test positive [Unknown]
